FAERS Safety Report 5545743-1 (Version None)
Quarter: 2007Q4

REPORT INFORMATION
  Report Type: 
  Country: None (occurrence: None)
  Receive Date: 20071207
  Receipt Date: 20071122
  Transmission Date: 20080405
  Serious: Yes (Hospitalization)
  Sender: FDA-Public Use
  Company Number: DSM-2007-00911

PATIENT
  Age: 38 Year
  Sex: Male
  Weight: 95 kg

DRUGS (4)
  1. OLMESARTAN MEDOXOMIL [Suspect]
     Indication: HYPERTENSION
     Dosage: 40 MG (40 MG, 1 IN 1 D), ORAL
     Route: 048
     Dates: start: 20071101, end: 20071117
  2. ENAP (ENALAPRIL) (5 MILLIGRAM, TABLET) (ENALAPRIL) [Concomitant]
  3. INDAP (INDAPAMIDE) (2.5 MILLIGRAM, CAPSULE) (INDAPAMIDE) [Concomitant]
  4. CAPOTEN (CAPTOPRIL) (25 MILLIGRAM, TABLET) (CAPTOPRIL) [Concomitant]

REACTIONS (3)
  - CAROTIDYNIA [None]
  - CONDITION AGGRAVATED [None]
  - CORONARY ARTERY DISEASE [None]
